FAERS Safety Report 7827322-6 (Version None)
Quarter: 2011Q4

REPORT INFORMATION
  Report Type: 
  Country: None (occurrence: None)
  Receive Date: 20111020
  Receipt Date: 20111013
  Transmission Date: 20120403
  Serious: Yes (Other)
  Sender: FDA-Public Use
  Company Number: BR-PFIZER INC-2011245045

PATIENT
  Age: 61 Year
  Sex: Female

DRUGS (1)
  1. GENOTROPIN [Suspect]
     Indication: OFF LABEL USE
     Dosage: 0.2 MG, 1X/DAY
     Route: 058
     Dates: start: 20110901

REACTIONS (2)
  - MALAISE [None]
  - INSOMNIA [None]
